FAERS Safety Report 4979681-X (Version None)
Quarter: 2006Q2

REPORT INFORMATION
  Report Type: 
  Country: None (occurrence: None)
  Receive Date: 20060418
  Receipt Date: 20060411
  Transmission Date: 20061013
  Serious: Yes (Hospitalization, Other)
  Sender: FDA-Public Use
  Company Number: 200610521GDS

PATIENT
  Age: 60 Year
  Sex: Male
  Weight: 75 kg

DRUGS (5)
  1. CIPROFLOXACIN HCL [Suspect]
     Indication: URINARY TRACT INFECTION
     Dosage: 1000 MG, TOTAL DAILY, ORAL
     Route: 048
     Dates: start: 19950317, end: 19950321
  2. CEFAZOLIN [Concomitant]
  3. GLYBURIDE [Concomitant]
  4. METFORMIN [Concomitant]
  5. ACETAMINOPHEN [Concomitant]

REACTIONS (5)
  - DEHYDRATION [None]
  - LETHARGY [None]
  - MALAISE [None]
  - NEUTROPENIA [None]
  - PYREXIA [None]
